FAERS Safety Report 4564964-8 (Version None)
Quarter: 2005Q1

REPORT INFORMATION
  Report Type: 
  Country: None (occurrence: None)
  Receive Date: 20050131
  Receipt Date: 20050125
  Transmission Date: 20050727
  Serious: Yes (Hospitalization)
  Sender: FDA-Public Use
  Company Number: US-JNJFOC-20050106121

PATIENT
  Age: 60 Year
  Sex: Male

DRUGS (5)
  1. DURAGESIC [Suspect]
     Route: 062
     Dates: start: 20040404
  2. DURAGESIC [Suspect]
     Route: 062
     Dates: start: 20040404
  3. DURAGESIC [Suspect]
     Route: 062
     Dates: start: 20040404
  4. DURAGESIC [Suspect]
     Route: 062
     Dates: start: 20040404
  5. MANY UNSPECIFIED MEDICATIONS [Concomitant]

REACTIONS (12)
  - ABDOMINAL PAIN [None]
  - ARTHRALGIA [None]
  - BURNING SENSATION [None]
  - CHEST PAIN [None]
  - CHILLS [None]
  - DIZZINESS [None]
  - DYSPNOEA [None]
  - HYPERGLYCAEMIA [None]
  - HYPERHIDROSIS [None]
  - NAUSEA [None]
  - PULMONARY THROMBOSIS [None]
  - THERAPEUTIC RESPONSE DECREASED [None]
